FAERS Safety Report 8467389-8 (Version None)
Quarter: 2012Q2

REPORT INFORMATION
  Report Type: 
  Country: None (occurrence: None)
  Receive Date: 20120626
  Receipt Date: 20120623
  Transmission Date: 20120825
  Serious: Yes (Other)
  Sender: FDA-Public Use
  Company Number: PHHO2008HU13304

PATIENT
  Sex: Male
  Weight: 91 kg

DRUGS (5)
  1. VITAMIN D [Concomitant]
     Dosage: UNK
     Dates: start: 20060328
  2. ZOLEDRONOC ACID [Suspect]
     Indication: METASTASES TO BONE
     Dosage: 4 MG, EVERY 3-4 WEEKS
     Route: 042
     Dates: start: 20060328
  3. CONCOR [Concomitant]
     Dosage: 5 MG, QD
     Route: 048
     Dates: start: 20030901
  4. CALCIUM [Concomitant]
     Dosage: UNK
     Dates: start: 20060328
  5. OLICARD [Concomitant]
     Dosage: 60 MG, QD
     Route: 048
     Dates: start: 20030901

REACTIONS (4)
  - SWELLING [None]
  - OSTEONECROSIS OF JAW [None]
  - BONE DISORDER [None]
  - ERYTHEMA [None]
